FAERS Safety Report 15542543 (Version 1)
Quarter: 2018Q4

REPORT INFORMATION
  Report Type: Spontaneous
  Country: US (occurrence: US)
  Receive Date: 20181017
  Receipt Date: 20181017
  Transmission Date: 20190205
  Serious: Yes (Hospitalization)
  Sender: FDA-Public Use
  Company Number: None

PATIENT
  Sex: Male

DRUGS (6)
  1. PULMOZYME [Suspect]
     Active Substance: DORNASE ALFA
     Indication: RESPIRATORY DISORDER
     Dosage: RESPIRATORY (INHALATION)
     Route: 055
     Dates: start: 20170328
  2. BACTRIM [Concomitant]
     Active Substance: SULFAMETHOXAZOLE\TRIMETHOPRIM
  3. CLONIDINE. [Concomitant]
     Active Substance: CLONIDINE
  4. CHLOR [Concomitant]
  5. BUDESONIDE. [Concomitant]
     Active Substance: BUDESONIDE
  6. TOBRAMYCIN. [Concomitant]
     Active Substance: TOBRAMYCIN

REACTIONS (1)
  - Hospitalisation [None]
